FAERS Safety Report 9714230 (Version 2)
Quarter: 2013Q4

REPORT INFORMATION
  Report Type: Spontaneous
  Country: US (occurrence: US)
  Receive Date: 20131126
  Receipt Date: 20131126
  Transmission Date: 20140711
  Serious: Yes (Other)
  Sender: FDA-Public Use
  Company Number: US-GILEAD-2008-0018570

PATIENT
  Age: 55 Year
  Sex: Female

DRUGS (11)
  1. LETAIRIS [Suspect]
     Indication: PULMONARY ARTERIAL HYPERTENSION
     Route: 048
     Dates: start: 20080228
  2. FUROSEMIDE [Concomitant]
  3. PREDNISONE [Concomitant]
  4. IMURAN [Concomitant]
  5. ACETYLCYSTEINE [Concomitant]
  6. ZOLOFT [Concomitant]
  7. TRAZODONE [Concomitant]
  8. PRISTIQ [Concomitant]
  9. FORTEO [Concomitant]
  10. REGLAN [Concomitant]
  11. NEXIUM [Concomitant]

REACTIONS (3)
  - Weight increased [None]
  - Localised oedema [None]
  - Oedema peripheral [None]
